FAERS Safety Report 13671700 (Version 1)
Quarter: 2017Q2

REPORT INFORMATION
  Report Type: Spontaneous
  Country: US (occurrence: US)
  Receive Date: 20170620
  Receipt Date: 20170620
  Transmission Date: 20170830
  Serious: No
  Sender: FDA-Public Use
  Company Number: US-ROCHE-102787

PATIENT
  Sex: Female
  Weight: 83.9 kg

DRUGS (5)
  1. 5-FU [Concomitant]
     Active Substance: FLUOROURACIL
     Indication: NEOPLASM MALIGNANT
     Route: 042
  2. HERCEPTIN [Concomitant]
     Active Substance: TRASTUZUMAB
     Indication: NEOPLASM MALIGNANT
     Route: 065
  3. PERCOCET [Concomitant]
     Active Substance: ACETAMINOPHEN\OXYCODONE HYDROCHLORIDE
     Route: 065
  4. XELODA [Suspect]
     Active Substance: CAPECITABINE
     Indication: NEOPLASM MALIGNANT
     Route: 048
  5. XELODA [Suspect]
     Active Substance: CAPECITABINE
     Indication: BREAST CANCER METASTATIC
     Route: 048

REACTIONS (6)
  - Palmar-plantar erythrodysaesthesia syndrome [Recovering/Resolving]
  - Pyrexia [Unknown]
  - Abdominal pain upper [Recovering/Resolving]
  - Dyspepsia [Unknown]
  - Arthritis [Unknown]
  - Anxiety [Unknown]
